FAERS Safety Report 9334664 (Version 2)
Quarter: 2013Q2

REPORT INFORMATION
  Report Type: Spontaneous
  Country: US (occurrence: US)
  Receive Date: 20130606
  Receipt Date: 20130611
  Transmission Date: 20140414
  Serious: Yes (Hospitalization)
  Sender: FDA-Public Use
  Company Number: US-MERCK-1305USA017403

PATIENT
  Age: 34 Year
  Sex: Male
  Weight: 97.96 kg

DRUGS (2)
  1. JANUMET [Suspect]
     Indication: DIABETES MELLITUS
     Dosage: UNK, BID
     Route: 048
     Dates: start: 20111130
  2. TRICOR (FENOFIBRATE) [Concomitant]
     Indication: HYPERTRIGLYCERIDAEMIA
     Dosage: ONCE DAILY
     Route: 048
     Dates: start: 20080917

REACTIONS (6)
  - Weight decreased [Unknown]
  - Blood glucose increased [Unknown]
  - Diarrhoea [Unknown]
  - Hyperhidrosis [Unknown]
  - Malaise [Unknown]
  - Lipase increased [Unknown]
